FAERS Safety Report 14847081 (Version 1)
Quarter: 2018Q2

REPORT INFORMATION
  Report Type: Spontaneous
  Country: US (occurrence: US)
  Receive Date: 20180420
  Receipt Date: 20180420
  Transmission Date: 20180711
  Serious: No
  Sender: FDA-Public Use
  Company Number: None

PATIENT
  Sex: Female

DRUGS (12)
  1. FOSINOPRIL [Concomitant]
     Active Substance: FOSINOPRIL
  2. FOLIC ACID. [Concomitant]
     Active Substance: FOLIC ACID
  3. EZETIMIBE. [Concomitant]
     Active Substance: EZETIMIBE
  4. ESTRADIOL. [Concomitant]
     Active Substance: ESTRADIOL
  5. SIROLIMUS. [Concomitant]
     Active Substance: SIROLIMUS
  6. PRAVASTATIN. [Concomitant]
     Active Substance: PRAVASTATIN
  7. GLIPIZIDE ER [Concomitant]
     Active Substance: GLIPIZIDE
  8. VITAMIN D [Concomitant]
     Active Substance: CHOLECALCIFEROL
  9. TACROLIMUS. [Concomitant]
     Active Substance: TACROLIMUS
  10. OCALIVA [Suspect]
     Active Substance: OBETICHOLIC ACID
     Indication: PRIMARY BILIARY CHOLANGITIS
     Route: 048
     Dates: start: 20170112
  11. NIFEDIPINE. [Concomitant]
     Active Substance: NIFEDIPINE
  12. TRAMADOL HCL [Concomitant]
     Active Substance: TRAMADOL HYDROCHLORIDE

REACTIONS (2)
  - Therapy change [None]
  - Pruritus [None]
